FAERS Safety Report 11999605 (Version 1)
Quarter: 2016Q1

REPORT INFORMATION
  Report Type: Report from Study
  Country: US (occurrence: US)
  Receive Date: 20160204
  Receipt Date: 20160204
  Transmission Date: 20160526
  Serious: Yes (Other)
  Sender: FDA-Public Use
  Company Number: US-ACCORD-037521

PATIENT
  Age: 6 Year
  Sex: Female

DRUGS (3)
  1. METHOTREXATE [Suspect]
     Active Substance: METHOTREXATE
     Indication: NON-HODGKIN^S LYMPHOMA
     Route: 037
  2. ONDANSETRON [Concomitant]
     Active Substance: ONDANSETRON
  3. SULFAMETHOXAZOLE/TRIMETHOPRIM [Concomitant]

REACTIONS (4)
  - Neurotoxicity [Unknown]
  - Seizure [Unknown]
  - Asthenia [Unknown]
  - Mental status changes [Unknown]
